FAERS Safety Report 8329139-5 (Version None)
Quarter: 2012Q2

REPORT INFORMATION
  Report Type: 
  Country: None (occurrence: None)
  Receive Date: 20120502
  Receipt Date: 20120424
  Transmission Date: 20120825
  Serious: Yes (Other)
  Sender: FDA-Public Use
  Company Number: US-JNJFOC-20120411852

PATIENT
  Sex: Female
  Weight: 91.63 kg

DRUGS (4)
  1. THYROID THERAPY [Concomitant]
  2. BLOOD PRESSURE MEDICATION NOS [Concomitant]
  3. XARELTO [Suspect]
     Indication: ATRIAL FIBRILLATION
     Route: 048
     Dates: start: 20120401
  4. POTASSIUM CHLORIDE [Concomitant]
     Dates: end: 20120401

REACTIONS (6)
  - DIZZINESS [None]
  - TREMOR [None]
  - FAECAL INCONTINENCE [None]
  - ASTHENIA [None]
  - MALAISE [None]
  - BLOOD POTASSIUM DECREASED [None]
